FAERS Safety Report 13891649 (Version 1)
Quarter: 2017Q3

REPORT INFORMATION
  Report Type: Spontaneous
  Country: DE (occurrence: DE)
  Receive Date: 20170822
  Receipt Date: 20170822
  Transmission Date: 20171127
  Serious: Yes (Other)
  Sender: FDA-Public Use
  Company Number: DE-TEVA-797702GER

PATIENT
  Age: 55 Year
  Sex: Female
  Weight: 79 kg

DRUGS (5)
  1. PROPOFOL 1% (10 MG/1 ML) MCT FRESENIUS [Concomitant]
     Indication: SEDATION
     Route: 042
     Dates: start: 20170728, end: 20170728
  2. HEPARIN-NATRIUM-25000-RATIOPHARM [Suspect]
     Active Substance: HEPARIN SODIUM
     Dosage: PACKAGE 2 ; AT 11:24
     Route: 040
     Dates: start: 20170728, end: 20170728
  3. HEPARIN-NATRIUM-25000-RATIOPHARM [Suspect]
     Active Substance: HEPARIN SODIUM
     Dosage: PACKAGE 1 ; ADMINISTRATION AT 10:34
     Route: 040
     Dates: start: 20170728, end: 20170728
  4. HEPARIN-NATRIUM-25000-RATIOPHARM [Suspect]
     Active Substance: HEPARIN SODIUM
     Indication: ANTICOAGULANT THERAPY
     Dosage: PACKAGE 2 ; AT 10:40
     Route: 040
     Dates: start: 20170728, end: 20170728
  5. JONOSTERIL [Concomitant]
     Active Substance: CALCIUM ACETATE\MAGNESIUM ACETATE\POTASSIUM ACETATE\SODIUM ACETATE\SODIUM CHLORIDE
     Indication: FLUID REPLACEMENT
     Route: 042
     Dates: start: 20170728, end: 20170728

REACTIONS (1)
  - Hypertensive crisis [Recovered/Resolved]

NARRATIVE: CASE EVENT DATE: 20170728
